FAERS Safety Report 21186266 (Version 2)
Quarter: 2023Q1

REPORT INFORMATION
  Report Type: Spontaneous
  Country: US (occurrence: US)
  Receive Date: 20220808
  Receipt Date: 20230314
  Transmission Date: 20230418
  Serious: Yes (Hospitalization, Other)
  Sender: FDA-Public Use
  Company Number: US-PFIZER INC-202201041513

PATIENT
  Age: 57 Year
  Sex: Male

DRUGS (2)
  1. XELJANZ [Suspect]
     Active Substance: TOFACITINIB CITRATE
     Indication: Rheumatoid arthritis
     Dosage: 5 MG, 2X/DAY
     Route: 048
     Dates: start: 20170901, end: 201903
  2. XELJANZ [Suspect]
     Active Substance: TOFACITINIB CITRATE
     Dosage: 5 MG, 2X/DAY (ONLY 3 DAYS A WEEK)
     Route: 048
     Dates: start: 20190327, end: 201908

REACTIONS (8)
  - Chest pain [Unknown]
  - Staphylococcal abscess [Recovering/Resolving]
  - Cellulitis staphylococcal [Recovering/Resolving]
  - Cardiomyopathy [Unknown]
  - Tricuspid valve incompetence [Unknown]
  - Chronic left ventricular failure [Unknown]
  - Diarrhoea [Unknown]
  - Herpes zoster [Unknown]

NARRATIVE: CASE EVENT DATE: 20180114
